FAERS Safety Report 11291100 (Version 1)
Quarter: 2015Q3

REPORT INFORMATION
  Report Type: Report from Study
  Country: CA (occurrence: CA)
  Receive Date: 20150722
  Receipt Date: 20150722
  Transmission Date: 20151125
  Serious: Yes (Other)
  Sender: FDA-Public Use
  Company Number: PHHY2012CA092438

PATIENT
  Age: 29 Year
  Sex: Female
  Weight: 65 kg

DRUGS (9)
  1. XOLAIR [Suspect]
     Active Substance: OMALIZUMAB
     Indication: ASTHMA
     Dosage: 300 MG, EVERY 4 WEEKS
     Route: 058
     Dates: start: 20120112
  2. PREDNISONE. [Concomitant]
     Active Substance: PREDNISONE
     Indication: PRODUCT USED FOR UNKNOWN INDICATION
     Dosage: UNK
     Route: 065
  3. PREDNISONE. [Concomitant]
     Active Substance: PREDNISONE
     Dosage: 3.5 MG, QD
     Route: 065
  4. SINGULAIR [Concomitant]
     Active Substance: MONTELUKAST SODIUM
     Indication: PRODUCT USED FOR UNKNOWN INDICATION
     Dosage: UNK
     Route: 065
  5. VENTOLIN [Concomitant]
     Active Substance: ALBUTEROL SULFATE
     Indication: ALLERGY TO ANIMAL
     Dosage: UNK
     Route: 065
  6. XOLAIR [Suspect]
     Active Substance: OMALIZUMAB
     Indication: CHRONIC SPONTANEOUS URTICARIA
     Dosage: 300 MG, MONTHLY
     Route: 058
     Dates: start: 20121121
  7. FLOVENT [Concomitant]
     Active Substance: FLUTICASONE PROPIONATE
     Indication: PRODUCT USED FOR UNKNOWN INDICATION
     Dosage: UNK UNK, BID
     Route: 065
  8. SALINE [Concomitant]
     Active Substance: SODIUM CHLORIDE
     Indication: NASAL CONGESTION
     Dosage: UNK
     Route: 065
  9. CICLOSPORIN [Suspect]
     Active Substance: CYCLOSPORINE
     Indication: PRODUCT USED FOR UNKNOWN INDICATION
     Dosage: 100 MG, BID (FOR 6 WEEKS)
     Route: 065

REACTIONS (20)
  - Mechanical urticaria [Not Recovered/Not Resolved]
  - Nasal pruritus [Unknown]
  - Sneezing [Unknown]
  - Urticaria [Recovered/Resolved]
  - Eczema [Unknown]
  - Respiratory disorder [Unknown]
  - Multiple allergies [Unknown]
  - Vocal cord disorder [Unknown]
  - Angioedema [Unknown]
  - Hirsutism [Unknown]
  - Upper respiratory tract infection [Unknown]
  - Eye pruritus [Unknown]
  - Rhinorrhoea [Unknown]
  - Wheezing [Unknown]
  - Injection site reaction [Recovered/Resolved]
  - Nasal congestion [Unknown]
  - Cough [Unknown]
  - Rhinitis allergic [Unknown]
  - Basal cell carcinoma [Unknown]
  - Dyspnoea [Unknown]

NARRATIVE: CASE EVENT DATE: 2012
